FAERS Safety Report 6233956-5 (Version None)
Quarter: 2009Q2

REPORT INFORMATION
  Report Type: 
  Country: None (occurrence: None)
  Receive Date: 20090618
  Receipt Date: 20090610
  Transmission Date: 20091009
  Serious: Yes (Other)
  Sender: FDA-Public Use
  Company Number: CN-BAYER-200922846GPV

PATIENT
  Age: 64 Year
  Sex: Male

DRUGS (1)
  1. UTRAVIST-370 [Suspect]
     Indication: COMPUTERISED TOMOGRAM
     Route: 042
     Dates: start: 20090609, end: 20090609

REACTIONS (3)
  - CONJUNCTIVAL OEDEMA [None]
  - DYSPNOEA [None]
  - PEAU D'ORANGE [None]
